FAERS Safety Report 15002839 (Version 1)
Quarter: 2018Q2

REPORT INFORMATION
  Report Type: Spontaneous
  Country: None (occurrence: US)
  Receive Date: 20180612
  Receipt Date: 20180612
  Transmission Date: 20180711
  Serious: Yes (Other)
  Sender: FDA-Public Use
  Company Number: US-MEDAC PHARMA, INC.-2049305

PATIENT
  Age: 52 Year
  Sex: Female
  Weight: 82.73 kg

DRUGS (3)
  1. TRAMADOL. [Concomitant]
     Active Substance: TRAMADOL
  2. HUMIRA [Concomitant]
     Active Substance: ADALIMUMAB
  3. RASUVO [Suspect]
     Active Substance: METHOTREXATE SODIUM
     Indication: RHEUMATOID ARTHRITIS

REACTIONS (10)
  - Ear pain [Recovered/Resolved]
  - Ear discomfort [Recovered/Resolved]
  - Photophobia [Recovered/Resolved]
  - Weight increased [Unknown]
  - Vertigo [Recovered/Resolved]
  - Neck pain [Recovered/Resolved]
  - Cognitive disorder [Recovered/Resolved]
  - Lacrimation increased [Recovered/Resolved]
  - Labyrinthitis [Recovered/Resolved]
  - Hypersensitivity [Recovered/Resolved]
